FAERS Safety Report 10296514 (Version 2)
Quarter: 2014Q3

REPORT INFORMATION
  Report Type: Spontaneous
  Country: KR (occurrence: KR)
  Receive Date: 20140710
  Receipt Date: 20140717
  Transmission Date: 20150326
  Serious: Yes (Other)
  Sender: FDA-Public Use
  Company Number: KR-ABBVIE-14P-286-1258087-00

PATIENT
  Age: 50 Year
  Sex: Female

DRUGS (1)
  1. VALPROIC ACID. [Suspect]
     Active Substance: VALPROIC ACID
     Indication: PRODUCT USED FOR UNKNOWN INDICATION

REACTIONS (5)
  - Lymphocyte count increased [Unknown]
  - Leukocytosis [Unknown]
  - Pseudolymphoma [Recovered/Resolved]
  - Pruritus [Unknown]
  - Rash maculo-papular [Unknown]
